FAERS Safety Report 25616173 (Version 1)
Quarter: 2025Q3

REPORT INFORMATION
  Report Type: Spontaneous
  Country: EU (occurrence: EU)
  Receive Date: 20250729
  Receipt Date: 20250729
  Transmission Date: 20251021
  Serious: Yes (Other)
  Sender: AMGEN
  Company Number: EU-AMGEN-NORSP2025148535

PATIENT

DRUGS (7)
  1. ETANERCEPT [Suspect]
     Active Substance: ETANERCEPT
     Indication: Axial spondyloarthritis
     Route: 065
  2. ETANERCEPT [Suspect]
     Active Substance: ETANERCEPT
     Indication: Off label use
  3. ADALIMUMAB [Suspect]
     Active Substance: ADALIMUMAB
     Indication: Axial spondyloarthritis
     Route: 065
  4. INFLIXIMAB [Suspect]
     Active Substance: INFLIXIMAB
     Indication: Axial spondyloarthritis
     Route: 065
  5. SULFASALAZINE [Suspect]
     Active Substance: SULFASALAZINE
     Indication: Product used for unknown indication
     Route: 065
  6. GOLIMUMAB [Suspect]
     Active Substance: GOLIMUMAB
     Indication: Product used for unknown indication
     Route: 065
  7. CERTOLIZUMAB PEGOL [Suspect]
     Active Substance: CERTOLIZUMAB PEGOL
     Indication: Product used for unknown indication
     Route: 065

REACTIONS (68)
  - Syncope [Unknown]
  - Myocardial infarction [Unknown]
  - Pleurisy [Unknown]
  - Gastric ulcer [Unknown]
  - Palpitations [Unknown]
  - Lower gastrointestinal haemorrhage [Unknown]
  - Puerperal infection [Unknown]
  - Cataract [Unknown]
  - Pericarditis [Unknown]
  - Tinea versicolour [Unknown]
  - Femur fracture [Unknown]
  - Lyme disease [Unknown]
  - Neutropenia [Unknown]
  - Pyelonephritis [Unknown]
  - Obstructive sleep apnoea syndrome [Unknown]
  - Gastrointestinal haemorrhage [Unknown]
  - Lower respiratory tract infection [Unknown]
  - Uveitis [Unknown]
  - Breast neoplasm [Unknown]
  - Hypomagnesaemia [Unknown]
  - Infusion related reaction [Unknown]
  - Upper respiratory tract infection [Unknown]
  - Chest pain [Unknown]
  - Intervertebral disc protrusion [Unknown]
  - Hepatic enzyme increased [Unknown]
  - Essential hypertension [Unknown]
  - Atrial flutter [Unknown]
  - Vitamin D deficiency [Unknown]
  - Ligament sprain [Unknown]
  - Calculus urinary [Unknown]
  - Osteoarthritis [Unknown]
  - Abdominal pain [Unknown]
  - Tendon rupture [Unknown]
  - Arteriosclerosis [Unknown]
  - Lymphadenopathy [Unknown]
  - Bacterial vaginosis [Unknown]
  - Psoriasis [Unknown]
  - Carpal tunnel syndrome [Unknown]
  - Dyspnoea [Unknown]
  - Hypoaesthesia [Unknown]
  - Rash [Unknown]
  - Nasal polyps [Unknown]
  - Gastroenteritis [Unknown]
  - Pain [Unknown]
  - Clavicle fracture [Unknown]
  - Haemorrhoids [Unknown]
  - Headache [Unknown]
  - Influenza [Unknown]
  - Lacrimal gland enlargement [Unknown]
  - Foot deformity [Unknown]
  - Meniscus injury [Unknown]
  - Menstrual disorder [Unknown]
  - Migraine [Unknown]
  - Furuncle [Unknown]
  - Eczema [Unknown]
  - Vertigo positional [Unknown]
  - Seasonal allergy [Unknown]
  - Asthma [Unknown]
  - Joint dislocation [Unknown]
  - Arthralgia [Unknown]
  - Dermal cyst [Unknown]
  - Cervical dysplasia [Unknown]
  - Tooth extraction [Unknown]
  - Traumatic arthropathy [Unknown]
  - Varicocele [Unknown]
  - Varicose vein [Unknown]
  - Vertigo [Unknown]
  - Off label use [Unknown]
